FAERS Safety Report 22172732 (Version 1)
Quarter: 2023Q2

REPORT INFORMATION
  Report Type: Spontaneous
  Country: US (occurrence: None)
  Receive Date: 20230403
  Receipt Date: 20230403
  Transmission Date: 20230722
  Serious: Yes (Other)
  Sender: FDA-Public Use
  Company Number: None

PATIENT
  Age: 44 Year
  Sex: Male
  Weight: 65.7 kg

DRUGS (1)
  1. DOXYCYCLINE [Suspect]
     Active Substance: DOXYCYCLINE
     Indication: Hernia
     Dosage: OTHER QUANTITY : 1 TABLET(S);?FREQUENCY : EVERY 12 HOURS;?
     Route: 048

REACTIONS (16)
  - Therapeutic response unexpected [None]
  - Pain [None]
  - Dyspnoea [None]
  - Chest discomfort [None]
  - Throat tightness [None]
  - Dysphagia [None]
  - Abdominal pain upper [None]
  - Abdominal discomfort [None]
  - Decreased appetite [None]
  - Gastrooesophageal reflux disease [None]
  - Dyspepsia [None]
  - Secretion discharge [None]
  - Tooth discolouration [None]
  - Toothache [None]
  - Fatigue [None]
  - Rash [None]

NARRATIVE: CASE EVENT DATE: 20230323
